FAERS Safety Report 7983615-3 (Version None)
Quarter: 2011Q4

REPORT INFORMATION
  Report Type: 
  Country: None (occurrence: None)
  Receive Date: 20111215
  Receipt Date: 20111209
  Transmission Date: 20120403
  Serious: Yes (Other)
  Sender: FDA-Public Use
  Company Number: PHEH2011US011584

PATIENT
  Sex: Female

DRUGS (1)
  1. GLEEVEC [Suspect]
     Indication: CHRONIC MYELOID LEUKAEMIA
     Dosage: 400 MG, QD
     Route: 048
     Dates: start: 20060619

REACTIONS (6)
  - DIARRHOEA [None]
  - MALAISE [None]
  - FOOD POISONING [None]
  - NAUSEA [None]
  - ABDOMINAL PAIN [None]
  - MUSCLE SPASMS [None]
